FAERS Safety Report 17028016 (Version 1)
Quarter: 2019Q4

REPORT INFORMATION
  Report Type: Spontaneous
  Country: US (occurrence: US)
  Receive Date: 20191113
  Receipt Date: 20191113
  Transmission Date: 20200122
  Serious: No
  Sender: FDA-Public Use
  Company Number: US-BAUSCH-BL-2019-058207

PATIENT
  Sex: Male

DRUGS (3)
  1. MIRALAX [Suspect]
     Active Substance: POLYETHYLENE GLYCOL 3350
     Indication: PRODUCT USED FOR UNKNOWN INDICATION
     Dosage: TAKES EVERYDAY
     Route: 065
  2. TRULANCE [Suspect]
     Active Substance: PLECANATIDE
     Indication: PRODUCT USED FOR UNKNOWN INDICATION
     Route: 065
  3. TRULANCE [Suspect]
     Active Substance: PLECANATIDE
     Route: 065
     Dates: start: 2019

REACTIONS (2)
  - Therapeutic product effect decreased [Unknown]
  - Negative thoughts [Unknown]

NARRATIVE: CASE EVENT DATE: 2019
